FAERS Safety Report 15197756 (Version 1)
Quarter: 2018Q3

REPORT INFORMATION
  Report Type: Spontaneous
  Country: US (occurrence: US)
  Receive Date: 20180725
  Receipt Date: 20180725
  Transmission Date: 20181010
  Serious: No
  Sender: FDA-Public Use
  Company Number: US-ABBVIE-17P-163-2108244-00

PATIENT
  Sex: Female

DRUGS (3)
  1. SYNTHROID [Suspect]
     Active Substance: LEVOTHYROXINE SODIUM
     Dosage: UNKNOWN DOSE
     Route: 048
     Dates: start: 2017, end: 2017
  2. SYNTHROID [Suspect]
     Active Substance: LEVOTHYROXINE SODIUM
     Dosage: WK 1: 62.5MCG 6 D 75 MCG 1 D WK 2: 62.5 MCG 5 D, 75MCG 2D
     Route: 048
     Dates: start: 201703
  3. SYNTHROID [Suspect]
     Active Substance: LEVOTHYROXINE SODIUM
     Indication: PRODUCT USED FOR UNKNOWN INDICATION
     Dosage: 62.5 MCG 6 D/WK, AND 1 D/ WK 75 MCG
     Route: 065
     Dates: end: 201703

REACTIONS (8)
  - Rash [Not Recovered/Not Resolved]
  - Intentional product misuse [Recovered/Resolved]
  - Urticaria [Not Recovered/Not Resolved]
  - Feeling jittery [Recovered/Resolved]
  - Pharyngeal oedema [Not Recovered/Not Resolved]
  - Rash erythematous [Not Recovered/Not Resolved]
  - Pruritus [Not Recovered/Not Resolved]
  - Chest discomfort [Not Recovered/Not Resolved]

NARRATIVE: CASE EVENT DATE: 201703
